FAERS Safety Report 12401412 (Version 2)
Quarter: 2016Q3

REPORT INFORMATION
  Report Type: Spontaneous
  Country: IT (occurrence: IT)
  Receive Date: 20160525
  Receipt Date: 20160715
  Transmission Date: 20161109
  Serious: Yes (Hospitalization)
  Sender: FDA-Public Use
  Company Number: IT-TEVA-661595ACC

PATIENT
  Age: 73 Year
  Sex: Male
  Weight: 75 kg

DRUGS (9)
  1. ZOLOFT - 50 MG - COMPRESSE RIVESTITE CON FILM [Concomitant]
     Indication: DEPRESSION
     Dosage: 25 MG
     Route: 048
  2. OMNIC - 0,4 MG CAPSULE RIGIDE A RILASCIO MODIFICATO [Concomitant]
     Indication: BENIGN PROSTATIC HYPERPLASIA
     Dosage: .4 MG
     Route: 048
  3. CARBOPLATIN. [Suspect]
     Active Substance: CARBOPLATIN
     Indication: LUNG NEOPLASM MALIGNANT
     Dosage: 289 MG TOTAL
     Route: 042
     Dates: start: 20160208, end: 20160208
  4. PEMETREXED DISODIUM [Suspect]
     Active Substance: PEMETREXED DISODIUM
     Indication: LUNG NEOPLASM MALIGNANT
     Dosage: 547 MG TOTAL
     Dates: start: 20160208, end: 20160208
  5. PANTORC - 40 MG  - COMPRESSE GASTRORESISTENTI [Concomitant]
     Indication: GASTROOESOPHAGEAL REFLUX PROPHYLAXIS
     Dosage: 40 MG
     Route: 048
  6. CARDIOASPIRIN - 100 MG COMPRESSE GASTRORESISTENTI [Concomitant]
     Active Substance: ASPIRIN
     Indication: THROMBOSIS PROPHYLAXIS
     Dosage: 100 MG
     Route: 048
  7. JAKAVI - 5 MG - COMPRESSA [Concomitant]
     Indication: MYELOFIBROSIS
     Dosage: 10 MG
     Route: 048
  8. ZYLORIC - 300 MG COMPRESSE [Concomitant]
     Indication: HYPERURICAEMIA
     Dosage: 150 MG
     Route: 048
  9. MOVICOL - 13.8 G - POLVERE PER SOLUZIONE ORALE [Concomitant]
     Indication: ASTRINGENT THERAPY
     Dosage: 13.8 G
     Route: 048

REACTIONS (5)
  - Neutropenia [Recovered/Resolved]
  - Anaemia [Recovered/Resolved]
  - Thrombocytopenia [Recovered/Resolved]
  - Pyrexia [Recovered/Resolved]
  - Cough [Recovered/Resolved]

NARRATIVE: CASE EVENT DATE: 20160214
